FAERS Safety Report 7450390-0 (Version None)
Quarter: 2011Q2

REPORT INFORMATION
  Report Type: 
  Country: None (occurrence: None)
  Receive Date: 20110429
  Receipt Date: 20110429
  Transmission Date: 20111010
  Serious: Yes (Life-Threatening, Hospitalization)
  Sender: FDA-Public Use
  Company Number: None

PATIENT
  Age: 13 Year
  Sex: Male
  Weight: 63.5036 kg

DRUGS (1)
  1. MINOCYCLINE HCL [Suspect]
     Indication: ACNE
     Dosage: 1 CAPSULE TWICE DAILY PO
     Route: 048
     Dates: start: 20101222, end: 20110130

REACTIONS (5)
  - VISUAL IMPAIRMENT [None]
  - HEADACHE [None]
  - PAIN [None]
  - BRAIN OEDEMA [None]
  - VISUAL FIELD DEFECT [None]
